FAERS Safety Report 14617505 (Version 4)
Quarter: 2024Q4

REPORT INFORMATION
  Report Type: Spontaneous
  Country: US (occurrence: US)
  Receive Date: 20180309
  Receipt Date: 20241023
  Transmission Date: 20250115
  Serious: Yes (Hospitalization)
  Sender: BAUSCH AND LOMB
  Company Number: US-MLMSERVICE-20180227-1082990-1

PATIENT
  Age: 29 Year
  Sex: Male

DRUGS (4)
  1. MESALAMINE [Interacting]
     Active Substance: MESALAMINE
     Indication: Colitis ulcerative
     Route: 065
  2. BUDESONIDE [Interacting]
     Active Substance: BUDESONIDE
     Indication: Autoimmune hepatitis
     Route: 065
  3. MERCAPTOPURINE [Interacting]
     Active Substance: MERCAPTOPURINE
     Indication: Autoimmune hepatitis
     Route: 065
  4. SIROLIMUS [Concomitant]
     Active Substance: SIROLIMUS
     Indication: Autoimmune hepatitis

REACTIONS (5)
  - Drug interaction [Unknown]
  - Myelosuppression [Unknown]
  - Cellulitis [Unknown]
  - Enzyme inhibition [Unknown]
  - Pancytopenia [Recovering/Resolving]
